FAERS Safety Report 10108817 (Version 1)
Quarter: 2014Q2

REPORT INFORMATION
  Report Type: Report from Study
  Country: US (occurrence: US)
  Receive Date: 20140425
  Receipt Date: 20140425
  Transmission Date: 20141212
  Serious: Yes (Hospitalization)
  Sender: FDA-Public Use
  Company Number: US-ROCHE-1386944

PATIENT
  Sex: Female

DRUGS (16)
  1. TRASTUZUMAB [Suspect]
     Indication: BREAST CANCER
     Route: 065
     Dates: start: 20140123, end: 20140417
  2. VINORELBINE [Suspect]
     Indication: BREAST CANCER
     Route: 065
     Dates: start: 20140123, end: 20140417
  3. HYDROCORTISONE [Concomitant]
     Dosage: 3 TIMES PER DAY
     Route: 061
  4. LEVOTHYROXINE [Concomitant]
     Route: 065
  5. LIDOCAINE/PRILOCAINE [Concomitant]
     Dosage: AS NEEDED
     Route: 061
  6. LORAZEPAM [Concomitant]
     Indication: INSOMNIA
     Dosage: AS NEEDED
     Route: 065
  7. LORAZEPAM [Concomitant]
     Indication: ANXIETY
  8. MECLIZINE [Concomitant]
     Dosage: TWICE A DAY
     Route: 048
  9. MORPHINE [Concomitant]
     Route: 065
  10. ONDANSETRON [Concomitant]
     Indication: NAUSEA
     Dosage: AS NEEDED
     Route: 065
  11. PERCOCET [Concomitant]
     Dosage: DOSE: 5-325 1-2 TABLETS EVERY 4 H AS NEEDED
     Route: 048
  12. VITAMIN D3 [Concomitant]
  13. COLACE [Concomitant]
  14. MIRALAX [Concomitant]
  15. SENOKOT [Concomitant]
  16. PEPCID [Concomitant]
     Route: 065

REACTIONS (1)
  - Chest pain [Unknown]
